FAERS Safety Report 6860397-X (Version None)
Quarter: 2010Q3

REPORT INFORMATION
  Report Type: 
  Country: None (occurrence: None)
  Receive Date: 20100720
  Receipt Date: 20100707
  Transmission Date: 20110219
  Serious: No
  Sender: FDA-Public Use
  Company Number: TW-ELI_LILLY_AND_COMPANY-TW201007003226

PATIENT
  Age: 30 Year
  Sex: Female

DRUGS (2)
  1. ZYPREXA [Suspect]
     Indication: SCHIZOPHRENIA
     Dosage: 40 MG, EACH EVENING
     Route: 065
  2. TEGRETOL [Concomitant]
     Dosage: UNK UNK, EVERY 8 HRS
     Route: 065

REACTIONS (2)
  - MENSTRUATION IRREGULAR [None]
  - WEIGHT INCREASED [None]
